FAERS Safety Report 23433458 (Version 1)
Quarter: 2024Q1

REPORT INFORMATION
  Report Type: Report from Study
  Country: US (occurrence: US)
  Receive Date: 20240123
  Receipt Date: 20240123
  Transmission Date: 20240410
  Serious: Yes (Death, Hospitalization)
  Sender: FDA-Public Use
  Company Number: US-BAYER-2023A186229

PATIENT
  Age: 73 Year
  Sex: Female
  Weight: 102.04 kg

DRUGS (32)
  1. ADEMPAS [Suspect]
     Active Substance: RIOCIGUAT
     Indication: Pulmonary arterial hypertension
     Dosage: UNK
     Dates: start: 20220316
  2. ADEMPAS [Suspect]
     Active Substance: RIOCIGUAT
     Indication: Pulmonary arterial hypertension
     Dosage: 2.5 MG, TID
     Route: 048
  3. ADEMPAS [Suspect]
     Active Substance: RIOCIGUAT
     Indication: Pulmonary arterial hypertension
     Dosage: 2.5 MG, TID
     Route: 048
  4. UPTRAVI [Concomitant]
     Active Substance: SELEXIPAG
  5. INSULIN GLARGINE-YFGN [Concomitant]
     Active Substance: INSULIN GLARGINE-YFGN
  6. ALBUTEROL\IPRATROPIUM [Concomitant]
     Active Substance: ALBUTEROL\IPRATROPIUM
  7. MELATONIN [Concomitant]
     Active Substance: MELATONIN
  8. MIDODRINE HYDROCHLORIDE [Concomitant]
     Active Substance: MIDODRINE HYDROCHLORIDE
  9. FAMOTIDINE [Concomitant]
     Active Substance: FAMOTIDINE
  10. FORMOTEROL [Concomitant]
     Active Substance: FORMOTEROL
  11. COLACE [Concomitant]
     Active Substance: DOCUSATE SODIUM
  12. HEPARIN SODIUM [Concomitant]
     Active Substance: HEPARIN SODIUM
  13. SILODOSIN [Concomitant]
     Active Substance: SILODOSIN
  14. QUETIAPINE FUMARATE [Concomitant]
     Active Substance: QUETIAPINE FUMARATE
  15. THEOPHYLLINE [Concomitant]
     Active Substance: THEOPHYLLINE
  16. MICONAZOLE [Concomitant]
     Active Substance: MICONAZOLE
  17. ONDANSETRON HYDROCHLORIDE [Concomitant]
     Active Substance: ONDANSETRON HYDROCHLORIDE
  18. THIAMINE HYDROCHLORIDE [Concomitant]
     Active Substance: THIAMINE HYDROCHLORIDE
  19. ALBUTEROL SULFATE [Concomitant]
     Active Substance: ALBUTEROL SULFATE
  20. TRAMADOL HCL [Concomitant]
     Active Substance: TRAMADOL HYDROCHLORIDE
  21. CHLORHEXIDINE GLUCONATE [Concomitant]
     Active Substance: CHLORHEXIDINE GLUCONATE
  22. ACETAMINOPHEN [Concomitant]
     Active Substance: ACETAMINOPHEN
  23. ALPRAZOLAM [Concomitant]
     Active Substance: ALPRAZOLAM
  24. ZINC OXIDE [Concomitant]
     Active Substance: ZINC OXIDE
  25. CYANOCOBALAMIN [Concomitant]
     Active Substance: CYANOCOBALAMIN
  26. SIMETHICONE (DIMETHICONE) [Concomitant]
     Active Substance: DIMETHICONE
  27. TRIAMCINOLONE ACETONIDE [Concomitant]
     Active Substance: TRIAMCINOLONE ACETONIDE
  28. CALMOSEPTINE [MENTHOL;ZINC OXIDE] [Concomitant]
  29. DIPHENOXYLATE [Concomitant]
     Active Substance: DIPHENOXYLATE
  30. ATROPINE [Concomitant]
     Active Substance: ATROPINE\ATROPINE SULFATE
  31. SODIUM BICARBONATE [Concomitant]
     Active Substance: SODIUM BICARBONATE
  32. OXYGEN [Concomitant]
     Active Substance: OXYGEN

REACTIONS (4)
  - Dyspnoea [None]
  - Fluid retention [None]
  - Lung disorder [None]
  - Death [Fatal]

NARRATIVE: CASE EVENT DATE: 20231201
